FAERS Safety Report 5964401-2 (Version None)
Quarter: 2008Q4

REPORT INFORMATION
  Report Type: 
  Country: None (occurrence: None)
  Receive Date: 20081124
  Receipt Date: 20081113
  Transmission Date: 20090506
  Serious: Yes (Other)
  Sender: FDA-Public Use
  Company Number: GB-PFIZER INC-2008097028

PATIENT
  Sex: Female

DRUGS (1)
  1. PHENYTOIN [Suspect]

REACTIONS (2)
  - ABNORMAL BEHAVIOUR [None]
  - DRUG TOXICITY [None]
